FAERS Safety Report 25152857 (Version 1)
Quarter: 2025Q2

REPORT INFORMATION
  Report Type: Spontaneous
  Country: US (occurrence: US)
  Receive Date: 20250403
  Receipt Date: 20250403
  Transmission Date: 20250716
  Serious: Yes (Hospitalization, Other)
  Sender: BRISTOL MYERS SQUIBB
  Company Number: US-CELGENE-USA-20210306054

PATIENT
  Age: 52 Year
  Sex: Female
  Weight: 119.3 kg

DRUGS (56)
  1. ABRAXANE [Suspect]
     Active Substance: PACLITAXEL
     Indication: Small cell lung cancer recurrent
     Route: 042
     Dates: start: 20210309, end: 20210316
  2. ABRAXANE [Suspect]
     Active Substance: PACLITAXEL
     Route: 042
     Dates: start: 20210316
  3. GEMCITABINE [Suspect]
     Active Substance: GEMCITABINE
     Indication: Small cell lung cancer recurrent
     Route: 042
     Dates: start: 20210309
  4. GEMCITABINE [Suspect]
     Active Substance: GEMCITABINE
     Route: 042
     Dates: start: 20210316
  5. ASPIRIN [Concomitant]
     Active Substance: ASPIRIN
     Indication: Prophylaxis
     Dosage: 325 MILLIGRAM
     Route: 048
     Dates: start: 2011, end: 20210405
  6. ATORVASTATIN [Concomitant]
     Active Substance: ATORVASTATIN
     Indication: Blood cholesterol increased
     Dosage: 20 MILLIGRAM
     Route: 048
     Dates: start: 2016, end: 20210405
  7. CALCIUM CARBONATE [Concomitant]
     Active Substance: CALCIUM CARBONATE
     Indication: Supplementation therapy
     Dosage: 1 TABLET
     Route: 048
     Dates: start: 2001, end: 20210405
  8. VITAMIN D3 [Concomitant]
     Active Substance: CHOLECALCIFEROL
     Indication: Supplementation therapy
     Dosage: 1000 UNIT
     Route: 048
     Dates: start: 2001, end: 20210405
  9. FLAXSEED [Concomitant]
     Active Substance: FLAX SEED
     Indication: Supplementation therapy
     Dosage: 1 TABLET
     Route: 048
     Dates: start: 2001, end: 20210405
  10. GLUCOSAMINE [Concomitant]
     Active Substance: GLUCOSAMINE
     Indication: Supplementation therapy
     Dosage: 1500 MILLIGRAM
     Route: 048
     Dates: start: 2001, end: 20210405
  11. PROBIOTIC COMPLEX [Concomitant]
     Indication: Supplementation therapy
     Dosage: 1 TABLET
     Route: 048
     Dates: start: 2001, end: 20210405
  12. VITAMINS [Concomitant]
     Active Substance: VITAMINS
     Indication: Supplementation therapy
     Dosage: 1 TABLET
     Route: 048
     Dates: start: 2001, end: 20210405
  13. OMEGA-3 FATTY ACIDS [Concomitant]
     Active Substance: OMEGA-3 FATTY ACIDS
     Indication: Supplementation therapy
     Dosage: 2 GRAM
     Route: 048
     Dates: start: 2001, end: 20210405
  14. IRON [Concomitant]
     Active Substance: IRON
     Indication: Supplementation therapy
     Route: 048
     Dates: start: 2020, end: 20210405
  15. GEMFIBROZIL [Concomitant]
     Active Substance: GEMFIBROZIL
     Indication: Blood cholesterol increased
     Dosage: 600 MILLIGRAM
     Route: 048
     Dates: start: 2011, end: 20210405
  16. LEVOTHYROXINE [Concomitant]
     Active Substance: LEVOTHYROXINE
     Indication: Hypothyroidism
     Dosage: 125 MICROGRAM
     Route: 048
     Dates: start: 2016, end: 20210423
  17. LORATADINE [Concomitant]
     Active Substance: LORATADINE
     Indication: Rhinitis allergic
     Dosage: 10 MILLIGRAM
     Route: 048
     Dates: start: 2016, end: 20210423
  18. METOPROLOL TARTRATE [Concomitant]
     Active Substance: METOPROLOL TARTRATE
     Indication: Hypertension
     Dosage: 25 MILLIGRAM
     Route: 048
     Dates: start: 2019, end: 20210405
  19. MONTELUKAST [Concomitant]
     Active Substance: MONTELUKAST
     Indication: Rhinitis allergic
     Dosage: 10 MILLIGRAM
     Route: 048
     Dates: start: 2016, end: 20210423
  20. OMEPRAZOLE [Concomitant]
     Active Substance: OMEPRAZOLE
     Indication: Gastrooesophageal reflux disease
     Dosage: 20 MILLIGRAM
     Route: 048
     Dates: start: 2016
  21. OXYBUTYNIN [Concomitant]
     Active Substance: OXYBUTYNIN
     Indication: Hypertonic bladder
     Dosage: 15 MILLIGRAM
     Route: 048
     Dates: start: 2011, end: 20210405
  22. AUGMENTIN [Concomitant]
     Active Substance: AMOXICILLIN\CLAVULANATE POTASSIUM
     Indication: Sinusitis
     Route: 048
     Dates: start: 20210316, end: 20210405
  23. DIFLUCAN [Concomitant]
     Active Substance: FLUCONAZOLE
     Indication: Candida infection
     Dosage: 100 MILLIGRAM
     Route: 048
     Dates: start: 20210316, end: 20210322
  24. ZOFRAN [Concomitant]
     Active Substance: ONDANSETRON HYDROCHLORIDE
     Indication: Nausea
     Dosage: 1 TABLET
     Route: 048
     Dates: start: 20210313, end: 20210405
  25. ZOFRAN [Concomitant]
     Active Substance: ONDANSETRON HYDROCHLORIDE
     Indication: Vomiting
     Route: 042
     Dates: start: 20210322, end: 20210323
  26. COMPAZINE [Concomitant]
     Active Substance: PROCHLORPERAZINE MALEATE
     Indication: Nausea
     Dosage: 1 TABLET
     Route: 048
     Dates: start: 20210313
  27. COMPAZINE [Concomitant]
     Active Substance: PROCHLORPERAZINE MALEATE
     Indication: Vomiting
     Dosage: 10 MILLIGRAM
     Route: 042
     Dates: start: 20210322, end: 20210322
  28. ALOE VERA LEAF [Concomitant]
     Active Substance: ALOE VERA LEAF
     Indication: Stomatitis
     Dosage: 40 MILLILITER
     Route: 048
     Dates: start: 20210316
  29. CEFEPIME [Concomitant]
     Active Substance: CEFEPIME HYDROCHLORIDE
     Indication: Prophylaxis
     Dosage: 6 GRAM
     Route: 042
     Dates: start: 20210321, end: 20210322
  30. REGLAN [Concomitant]
     Active Substance: METOCLOPRAMIDE HYDROCHLORIDE
     Indication: Nausea
     Route: 042
     Dates: start: 20210321, end: 20210321
  31. REGLAN [Concomitant]
     Active Substance: METOCLOPRAMIDE HYDROCHLORIDE
     Indication: Vomiting
  32. SODIUM CHLORIDE [Concomitant]
     Active Substance: SODIUM CHLORIDE
     Indication: Diarrhoea
     Route: 040
     Dates: start: 20210321, end: 20210324
  33. TYLENOL [Concomitant]
     Active Substance: ACETAMINOPHEN
     Indication: Prophylaxis
     Route: 048
     Dates: start: 20210321, end: 20210324
  34. MAGNESIUM SULFATE [Concomitant]
     Active Substance: MAGNESIUM SULFATE
     Indication: Hypomagnesaemia
     Dosage: 1 GRAM
     Route: 042
     Dates: start: 20210321, end: 20210321
  35. MAGNESIUM SULFATE [Concomitant]
     Active Substance: MAGNESIUM SULFATE
     Dosage: 1 GRAM
     Route: 042
     Dates: start: 20210322, end: 20210322
  36. LACTOBACILLUS ACIDOPHILUS [Concomitant]
     Active Substance: LACTOBACILLUS ACIDOPHILUS
     Indication: Diarrhoea
     Route: 048
     Dates: start: 20210322, end: 20210324
  37. PROTONIX [Concomitant]
     Active Substance: PANTOPRAZOLE SODIUM
     Indication: Prophylaxis
     Dosage: 40 MILLIGRAM
     Route: 048
     Dates: start: 20210322, end: 20210324
  38. IMODIUM [Concomitant]
     Active Substance: LOPERAMIDE HYDROCHLORIDE
     Indication: Diarrhoea
     Route: 048
     Dates: start: 20210322, end: 20210324
  39. GRANIX [Concomitant]
     Active Substance: TBO-FILGRASTIM
     Indication: Prophylaxis
     Dosage: 480 MICROGRAM
     Route: 058
     Dates: start: 20210322, end: 20210427
  40. GRANIX [Concomitant]
     Active Substance: TBO-FILGRASTIM
     Indication: Febrile neutropenia
  41. ZOSYN [Concomitant]
     Active Substance: PIPERACILLIN SODIUM\TAZOBACTAM SODIUM
     Indication: Prophylaxis
     Dosage: 4.5 GRAM
     Route: 042
     Dates: start: 20210322, end: 20210322
  42. ZOSYN [Concomitant]
     Active Substance: PIPERACILLIN SODIUM\TAZOBACTAM SODIUM
     Dosage: 10.125 GRAM
     Route: 042
     Dates: start: 20210322, end: 20210324
  43. TUMS [Concomitant]
     Active Substance: CALCIUM CARBONATE
     Indication: Nausea
     Dosage: 500 MILLIGRAM
     Route: 048
     Dates: start: 20210322, end: 20210322
  44. TUMS [Concomitant]
     Active Substance: CALCIUM CARBONATE
     Indication: Vomiting
  45. POTASSIUM [Concomitant]
     Active Substance: POTASSIUM
     Indication: Hypokalaemia
     Dosage: 10 MILLIEQUIVALENTS
     Route: 048
     Dates: start: 20210405, end: 20210423
  46. POTASSIUM [Concomitant]
     Active Substance: POTASSIUM
     Indication: Vomiting
  47. MACROBID [Concomitant]
     Active Substance: NITROFURANTOIN\NITROFURANTOIN MONOHYDRATE
     Indication: Urinary tract infection
     Dosage: 20 MILLIEQUIVALENTS
     Route: 048
     Dates: start: 20210412, end: 20210419
  48. MACROBID [Concomitant]
     Active Substance: NITROFURANTOIN\NITROFURANTOIN MONOHYDRATE
     Indication: Vomiting
  49. TRIAMCINOLONE [Concomitant]
     Active Substance: TRIAMCINOLONE
     Indication: Rash maculo-papular
     Dosage: 20 MILLIEQUIVALENTS
     Route: 061
     Dates: start: 20210407, end: 20210421
  50. TRIAMCINOLONE [Concomitant]
     Active Substance: TRIAMCINOLONE
     Indication: Vomiting
  51. AZITHROMYCIN [Concomitant]
     Active Substance: AZITHROMYCIN
     Indication: Sinusitis
     Route: 048
     Dates: start: 20210407, end: 20210412
  52. AZITHROMYCIN [Concomitant]
     Active Substance: AZITHROMYCIN
     Indication: Vomiting
  53. ZINC [Concomitant]
     Active Substance: ZINC
     Indication: Dysgeusia
     Route: 048
     Dates: start: 20210424
  54. ZINC [Concomitant]
     Active Substance: ZINC
     Indication: Vomiting
  55. NEULASTA [Concomitant]
     Active Substance: PEGFILGRASTIM
     Indication: Prophylaxis
     Dosage: .75 MILLIGRAM
     Route: 058
     Dates: start: 20210503
  56. NEULASTA [Concomitant]
     Active Substance: PEGFILGRASTIM
     Indication: Vomiting

REACTIONS (6)
  - Diarrhoea [Recovered/Resolved]
  - Hyponatraemia [Recovered/Resolved]
  - Aspartate aminotransferase increased [Recovered/Resolved]
  - Thrombocytopenia [Recovered/Resolved]
  - Nausea [Recovered/Resolved]
  - Vomiting [Recovered/Resolved]

NARRATIVE: CASE EVENT DATE: 20210313
